FAERS Safety Report 12007875 (Version 1)
Quarter: 2016Q1

REPORT INFORMATION
  Report Type: Spontaneous
  Country: US (occurrence: US)
  Receive Date: 20160205
  Receipt Date: 20160205
  Transmission Date: 20160526
  Serious: No
  Sender: FDA-Public Use
  Company Number: US-ABBVIE-15K-163-1438502-00

PATIENT
  Age: 59 Year
  Sex: Female
  Weight: 74.91 kg

DRUGS (1)
  1. HUMIRA [Suspect]
     Active Substance: ADALIMUMAB
     Indication: PSORIATIC ARTHROPATHY
     Route: 058
     Dates: start: 20150731

REACTIONS (5)
  - Injury associated with device [Not Recovered/Not Resolved]
  - Injection site pain [Recovered/Resolved]
  - Device issue [Unknown]
  - Incorrect dose administered [Unknown]
  - Injection site haemorrhage [Recovered/Resolved]

NARRATIVE: CASE EVENT DATE: 20150731
